FAERS Safety Report 25037396 (Version 3)
Quarter: 2025Q2

REPORT INFORMATION
  Report Type: Spontaneous
  Country: CA (occurrence: CA)
  Receive Date: 20250304
  Receipt Date: 20250521
  Transmission Date: 20250716
  Serious: Yes (Other)
  Sender: ALEXION PHARMACEUTICALS
  Company Number: CA-AstraZeneca-CH-00816024A

PATIENT

DRUGS (6)
  1. FASLODEX [Suspect]
     Active Substance: FULVESTRANT
     Indication: Breast cancer metastatic
     Route: 065
  2. FASLODEX [Suspect]
     Active Substance: FULVESTRANT
  3. PALBOCICLIB [Suspect]
     Active Substance: PALBOCICLIB
     Route: 065
  4. CAPECITABINE [Concomitant]
     Active Substance: CAPECITABINE
     Indication: Product used for unknown indication
     Route: 065
  5. LETROZOLE [Concomitant]
     Active Substance: LETROZOLE
     Route: 065
  6. PACLITAXEL [Concomitant]
     Active Substance: PACLITAXEL
     Route: 065

REACTIONS (1)
  - Malignant neoplasm progression [Unknown]
